FAERS Safety Report 4941663-1 (Version None)
Quarter: 2006Q1

REPORT INFORMATION
  Report Type: 
  Country: None (occurrence: None)
  Receive Date: 20060313
  Receipt Date: 20060306
  Transmission Date: 20060701
  Serious: Yes (Hospitalization, Disabling)
  Sender: FDA-Public Use
  Company Number: US-ROCHE-439154

PATIENT
  Age: 29 Year
  Sex: Female
  Weight: 48.1 kg

DRUGS (1)
  1. VESANOID [Suspect]
     Dosage: GIVEN AS 40 MG AND 30 MG.
     Route: 048
     Dates: start: 20060126, end: 20060306

REACTIONS (10)
  - ABNORMAL BEHAVIOUR [None]
  - AGITATION [None]
  - ALOPECIA [None]
  - ANXIETY [None]
  - BIPOLAR DISORDER [None]
  - DELUSION [None]
  - EMOTIONAL DISTRESS [None]
  - GRAND MAL CONVULSION [None]
  - NERVOUSNESS [None]
  - PALPITATIONS [None]
